FAERS Safety Report 8621338-8 (Version None)
Quarter: 2012Q3

REPORT INFORMATION
  Report Type: 
  Country: None (occurrence: None)
  Receive Date: 20120824
  Receipt Date: 20120821
  Transmission Date: 20120928
  Serious: Yes (Death)
  Sender: FDA-Public Use
  Company Number: CA-ROCHE-1105834

PATIENT
  Age: 72 Year
  Sex: Female
  Weight: 72.64 kg

DRUGS (6)
  1. XELODA [Suspect]
     Indication: PRODUCT USED FOR UNKNOWN INDICATION
     Route: 048
  2. SLOW-K [Concomitant]
     Route: 065
  3. PICO-SALAX [Concomitant]
     Route: 065
  4. ENEMA NOS [Concomitant]
     Dosage: REOPORTED AS ENEMOL
     Route: 065
  5. APO-PROCHLORAZINE [Suspect]
     Indication: PRODUCT USED FOR UNKNOWN INDICATION
     Route: 048
  6. LORAZEPAM [Concomitant]
     Route: 065

REACTIONS (6)
  - MYOCARDITIS [None]
  - ARTERIOSCLEROSIS CORONARY ARTERY [None]
  - CHEST PAIN [None]
  - CIRCULATORY COLLAPSE [None]
  - LEFT VENTRICULAR HYPERTROPHY [None]
  - CARDIOMEGALY [None]
